FAERS Safety Report 4783538-7 (Version None)
Quarter: 2005Q3

REPORT INFORMATION
  Report Type: 
  Country: None (occurrence: None)
  Receive Date: 20050928
  Receipt Date: 20050928
  Transmission Date: 20060218
  Serious: Yes (Other)
  Sender: FDA-Public Use
  Company Number: None

PATIENT
  Age: 30 Year
  Sex: Female
  Weight: 63.5036 kg

DRUGS (1)
  1. HYDROCODONE APAP 10/325 MG MALLINCKRODT [Suspect]
     Indication: PAIN
     Dosage: 1-2 PILLS EVERY 4-6 HRS PO
     Route: 048
     Dates: start: 20050924, end: 20050926

REACTIONS (3)
  - DRUG EFFECT DECREASED [None]
  - POOR QUALITY DRUG ADMINISTERED [None]
  - THERAPEUTIC RESPONSE UNEXPECTED WITH DRUG SUBSTITUTION [None]
